FAERS Safety Report 7795909-5 (Version None)
Quarter: 2011Q4

REPORT INFORMATION
  Report Type: 
  Country: None (occurrence: None)
  Receive Date: 20111004
  Receipt Date: 20110926
  Transmission Date: 20120403
  Serious: Yes (Other)
  Sender: FDA-Public Use
  Company Number: US-US-EMD SERONO, INC.-7086032

PATIENT
  Sex: Female

DRUGS (3)
  1. THYROID REPLACEMENT [Concomitant]
     Dates: start: 20110101
  2. THYROID REPLACEMENT [Concomitant]
     Indication: BASEDOW'S DISEASE
     Dates: end: 20110101
  3. REBIF [Suspect]
     Indication: PRODUCT USED FOR UNKNOWN INDICATION
     Route: 058
     Dates: start: 20100714

REACTIONS (5)
  - INJECTION SITE REACTION [None]
  - INJECTION SITE MASS [None]
  - COELIAC DISEASE [None]
  - MUSCLE SPASTICITY [None]
  - INJECTION SITE PAIN [None]
